FAERS Safety Report 13751931 (Version 1)
Quarter: 2017Q3

REPORT INFORMATION
  Report Type: Spontaneous
  Country: SE (occurrence: SE)
  Receive Date: 20170713
  Receipt Date: 20170713
  Transmission Date: 20171127
  Serious: Yes (Hospitalization)
  Sender: FDA-Public Use
  Company Number: SE-TEVA-785171ISR

PATIENT
  Age: 74 Year
  Sex: Female

DRUGS (7)
  1. CANDESARTAN. [Suspect]
     Active Substance: CANDESARTAN
     Route: 048
  2. DUROFERON [Suspect]
     Active Substance: FERROUS SULFATE
     Route: 065
  3. CORDARONE [Suspect]
     Active Substance: AMIODARONE HYDROCHLORIDE
     Route: 065
  4. KALEORID [Suspect]
     Active Substance: POTASSIUM CHLORIDE
     Route: 065
  5. BISOPROLOL ORIFARM [Suspect]
     Active Substance: BISOPROLOL
     Route: 065
  6. LETROZOLE. [Suspect]
     Active Substance: LETROZOLE
     Route: 048
  7. FURIX [Suspect]
     Active Substance: FUROSEMIDE
     Route: 065

REACTIONS (3)
  - Accidental overdose [Recovered/Resolved]
  - Hyperkalaemia [Recovered/Resolved]
  - Medication error [Recovered/Resolved]
